FAERS Safety Report 7691211-0 (Version None)
Quarter: 2011Q3

REPORT INFORMATION
  Report Type: 
  Country: None (occurrence: None)
  Receive Date: 20110818
  Receipt Date: 20110808
  Transmission Date: 20111222
  Serious: Yes (Hospitalization)
  Sender: FDA-Public Use
  Company Number: FR-JNJFOC-20110804066

PATIENT
  Age: 20 Year
  Sex: Female
  Weight: 53 kg

DRUGS (8)
  1. REMICADE [Suspect]
     Indication: ILL-DEFINED DISORDER
     Dosage: 300 MG
     Route: 042
     Dates: start: 20100108, end: 20110520
  2. FERROUS SULFATE TAB [Concomitant]
     Route: 065
  3. METHOTREXATE SODIUM [Suspect]
     Route: 058
     Dates: start: 20060101, end: 20080101
  4. INDOMETHACIN [Concomitant]
     Route: 048
  5. OMEPRAZOLE [Concomitant]
     Route: 048
  6. METHOTREXATE SODIUM [Suspect]
     Indication: ILL-DEFINED DISORDER
     Route: 058
     Dates: start: 20100108, end: 20110520
  7. PREDNISONE [Concomitant]
     Route: 048
  8. CONTRAMAL LP [Concomitant]
     Route: 065

REACTIONS (3)
  - C-REACTIVE PROTEIN INCREASED [None]
  - LYMPHADENOPATHY [None]
  - OEDEMA PERIPHERAL [None]
